FAERS Safety Report 7235844-4 (Version None)
Quarter: 2011Q1

REPORT INFORMATION
  Report Type: 
  Country: None (occurrence: None)
  Receive Date: 20110120
  Receipt Date: 20110106
  Transmission Date: 20110831
  Serious: Yes (Other)
  Sender: FDA-Public Use
  Company Number: US-ROCHE-731172

PATIENT
  Sex: Male
  Weight: 83.9 kg

DRUGS (1)
  1. ACCUTANE [Suspect]
     Indication: ACNE
     Route: 065
     Dates: start: 19950825, end: 19960201

REACTIONS (5)
  - DIVERTICULITIS [None]
  - PROCTITIS ULCERATIVE [None]
  - GASTROINTESTINAL INJURY [None]
  - BLOOD CHOLESTEROL INCREASED [None]
  - LIGAMENT SPRAIN [None]
